FAERS Safety Report 18608507 (Version 2)
Quarter: 2020Q4

REPORT INFORMATION
  Report Type: Spontaneous
  Country: US (occurrence: US)
  Receive Date: 20201212
  Receipt Date: 20201216
  Transmission Date: 20210114
  Serious: No
  Sender: FDA-Public Use
  Company Number: US-ASTRAZENECA-2020SF60197

PATIENT
  Age: 21656 Day
  Sex: Female
  Weight: 112.9 kg

DRUGS (1)
  1. BYDUREON BCISE [Suspect]
     Active Substance: EXENATIDE
     Indication: TYPE 2 DIABETES MELLITUS
     Route: 058

REACTIONS (3)
  - Intentional device misuse [Unknown]
  - Device leakage [Unknown]
  - Injection site mass [Unknown]

NARRATIVE: CASE EVENT DATE: 20201118
